FAERS Safety Report 22394112 (Version 1)
Quarter: 2023Q2

REPORT INFORMATION
  Report Type: Report from Study
  Country: FR (occurrence: FR)
  Receive Date: 20230601
  Receipt Date: 20230601
  Transmission Date: 20230721
  Serious: Yes (Hospitalization)
  Sender: FDA-Public Use
  Company Number: FR-SA-SAC20230124001622

PATIENT
  Sex: Male

DRUGS (8)
  1. ISATUXIMAB [Suspect]
     Active Substance: ISATUXIMAB
     Indication: Plasma cell myeloma
     Dosage: 10 MG/KG, D1, D15
     Route: 042
     Dates: start: 20221028, end: 20221028
  2. ISATUXIMAB [Suspect]
     Active Substance: ISATUXIMAB
     Dosage: 10 MG/KG, D1, D15
     Route: 042
     Dates: start: 20220427, end: 20220427
  3. CARFILZOMIB [Suspect]
     Active Substance: CARFILZOMIB
     Indication: Plasma cell myeloma
     Dosage: 56 MG/M2, D1, D8, D15
     Route: 042
     Dates: start: 20221028, end: 20221028
  4. CARFILZOMIB [Suspect]
     Active Substance: CARFILZOMIB
     Dosage: 56 MG/M2, D1, D8, D15
     Route: 042
     Dates: start: 20220427, end: 20220427
  5. LENALIDOMIDE [Suspect]
     Active Substance: LENALIDOMIDE
     Indication: Plasma cell myeloma
     Dosage: 25 MG, D1, D21
     Route: 048
     Dates: start: 20221203, end: 20221203
  6. LENALIDOMIDE [Suspect]
     Active Substance: LENALIDOMIDE
     Dosage: 25 MG, D1, D21
     Route: 048
     Dates: start: 20220427, end: 20220427
  7. DEXAMETHASONE [Suspect]
     Active Substance: DEXAMETHASONE
     Indication: Plasma cell myeloma
     Dosage: 40 MG, D1, D8, D15, D21
     Route: 048
     Dates: start: 20221204, end: 20221204
  8. DEXAMETHASONE [Suspect]
     Active Substance: DEXAMETHASONE
     Dosage: 40 MG, D1, D8, D15, D21
     Route: 048
     Dates: start: 20220427, end: 20220427

REACTIONS (1)
  - Pyelonephritis [Recovered/Resolved]

NARRATIVE: CASE EVENT DATE: 20230112
